FAERS Safety Report 10229435 (Version 2)
Quarter: 2014Q2

REPORT INFORMATION
  Report Type: Spontaneous
  Country: GB (occurrence: GB)
  Receive Date: 20140611
  Receipt Date: 20140620
  Transmission Date: 20141212
  Serious: Yes (Disabling)
  Sender: FDA-Public Use
  Company Number: 2014SP003105

PATIENT
  Age: 11 Year
  Sex: Male
  Weight: 35.9 kg

DRUGS (11)
  1. METHOTREXATE [Suspect]
     Indication: NON-HODGKIN^S LYMPHOMA
     Route: 042
     Dates: start: 20140305, end: 20140305
  2. METHOTREXATE [Suspect]
     Indication: NON-HODGKIN^S LYMPHOMA
  3. SAMSCA [Suspect]
     Indication: INAPPROPRIATE ANTIDIURETIC HORMONE SECRETION
     Route: 048
     Dates: start: 20140227
  4. SAMSCA [Suspect]
     Indication: INAPPROPRIATE ANTIDIURETIC HORMONE SECRETION
     Route: 048
     Dates: end: 20140305
  5. CYCLOPHOSPHAMIDE [Concomitant]
     Route: 042
     Dates: start: 20140306, end: 20140308
  6. CYTARABINE [Concomitant]
  7. DOXORUBICIN [Concomitant]
     Route: 042
     Dates: start: 20140306
  8. FOLINIC ACID [Concomitant]
     Route: 042
     Dates: start: 20140306
  9. HYDROCORTISONE [Concomitant]
  10. PREDNISOLONE [Concomitant]
     Route: 048
     Dates: start: 20140305, end: 20140309
  11. VINCRISTINE [Concomitant]
     Route: 042
     Dates: start: 20140305

REACTIONS (10)
  - Drug interaction [Unknown]
  - Dactylitis [Recovering/Resolving]
  - Dermatitis [Recovering/Resolving]
  - Dry skin [Recovering/Resolving]
  - Erythema [Recovering/Resolving]
  - Skin fissures [Recovering/Resolving]
  - Pain of skin [Recovering/Resolving]
  - Skin exfoliation [Recovering/Resolving]
  - Skin discolouration [Recovering/Resolving]
  - Oedema [Recovering/Resolving]
